FAERS Safety Report 7914844-2 (Version None)
Quarter: 2011Q4

REPORT INFORMATION
  Report Type: 
  Country: None (occurrence: None)
  Receive Date: 20111115
  Receipt Date: 20111107
  Transmission Date: 20120403
  Serious: Yes (Hospitalization)
  Sender: FDA-Public Use
  Company Number: US-ELI_LILLY_AND_COMPANY-US201109007909

PATIENT
  Sex: Female
  Weight: 59.41 kg

DRUGS (4)
  1. EFFIENT [Suspect]
     Indication: ANGIOPLASTY
     Dosage: 10 MG, QD
     Dates: start: 20110822, end: 20110923
  2. TOPROL-XL [Concomitant]
     Dosage: 25 MG, QD
  3. ZOCOR [Concomitant]
     Dosage: 40 MG, QD
  4. ASPIRIN [Concomitant]
     Dosage: 82 MG, QD

REACTIONS (12)
  - HYPOAESTHESIA [None]
  - DYSPNOEA [None]
  - DEAFNESS [None]
  - HEART RATE INCREASED [None]
  - MALAISE [None]
  - HYPERSENSITIVITY [None]
  - TINNITUS [None]
  - BLINDNESS [None]
  - PARAESTHESIA ORAL [None]
  - BLOOD PRESSURE INCREASED [None]
  - ASTHENIA [None]
  - DIZZINESS [None]
